FAERS Safety Report 7043709-6 (Version None)
Quarter: 2010Q4

REPORT INFORMATION
  Report Type: 
  Country: None (occurrence: None)
  Receive Date: 20101013
  Receipt Date: 20100930
  Transmission Date: 20110411
  Serious: Yes (Hospitalization)
  Sender: FDA-Public Use
  Company Number: DE-WATSON-2010-13221

PATIENT
  Age: 20 Year
  Sex: Female

DRUGS (6)
  1. PREDNISOLONE [Suspect]
     Indication: JUVENILE ARTHRITIS
     Dosage: UNK
  2. ETANERCEPT [Suspect]
     Indication: JUVENILE ARTHRITIS
     Dosage: UNK
  3. ADALIMUMAB [Suspect]
     Indication: JUVENILE ARTHRITIS
     Dosage: UNK
  4. INFLIXIMAB [Suspect]
     Indication: JUVENILE ARTHRITIS
     Dosage: UNK
  5. METHOTREXATE [Suspect]
     Indication: JUVENILE ARTHRITIS
     Dosage: UNK
  6. LEFLUNOMIDE [Suspect]
     Indication: JUVENILE ARTHRITIS
     Dosage: UNK

REACTIONS (1)
  - CERVICAL DYSPLASIA [None]
